FAERS Safety Report 4317160-3 (Version None)
Quarter: 2004Q1

REPORT INFORMATION
  Report Type: 
  Country: None (occurrence: None)
  Receive Date: 20040312
  Receipt Date: 20040302
  Transmission Date: 20041129
  Serious: Yes (Other)
  Sender: FDA-Public Use
  Company Number: DE-JNJFOC-20040301560

PATIENT
  Sex: Female

DRUGS (3)
  1. RISPERDAL CONSTA [Suspect]
     Indication: PSYCHOTIC DISORDER
     Dosage: 37.5 MG, 1 IN 2 WEEK, INTRA-MUSCULAR
     Route: 030
     Dates: start: 20040201
  2. RISPERDAL [Suspect]
     Indication: MENTAL DISORDER
     Dosage: 7 MG, ORAL
     Route: 048
     Dates: start: 20040101
  3. CARBIMAZOL (CARBIMAZOLE) [Concomitant]

REACTIONS (3)
  - DRUG INTERACTION [None]
  - ELECTROCARDIOGRAM CHANGE [None]
  - ELECTROCARDIOGRAM QT CORRECTED INTERVAL PROLONGED [None]
